FAERS Safety Report 9058980 (Version 1)
Quarter: 2013Q1

REPORT INFORMATION
  Report Type: Spontaneous
  Country: US (occurrence: US)
  Receive Date: 20130211
  Receipt Date: 20130211
  Transmission Date: 20140127
  Serious: No
  Sender: FDA-Public Use
  Company Number: US-BRISTOL-MYERS SQUIBB COMPANY-16495012

PATIENT
  Age: 46 Year
  Sex: Female
  Weight: 68.93 kg

DRUGS (4)
  1. METFORMIN HCL [Suspect]
  2. ALLEGRA [Concomitant]
  3. LEVOTHYROXINE [Concomitant]
  4. GLUCOSAMINE [Concomitant]

REACTIONS (3)
  - Blood glucose increased [Unknown]
  - Malaise [Unknown]
  - Fungal infection [Unknown]
